FAERS Safety Report 8384747-0 (Version None)
Quarter: 2012Q2

REPORT INFORMATION
  Report Type: 
  Country: None (occurrence: None)
  Receive Date: 20120524
  Receipt Date: 20120516
  Transmission Date: 20120825
  Serious: Yes (Life-Threatening, Hospitalization)
  Sender: FDA-Public Use
  Company Number: JP-FRI-1000030717

PATIENT
  Age: 83 Year
  Sex: Female

DRUGS (5)
  1. MEMANTINE HCL [Suspect]
     Dosage: 20 MG
     Route: 048
     Dates: start: 20110722, end: 20110925
  2. MEMANTINE HCL [Suspect]
     Indication: DEMENTIA
     Dosage: 5 MG
     Route: 048
     Dates: start: 20110627
  3. ARICEPT [Concomitant]
     Dosage: 10 MG
  4. MEMANTINE HCL [Suspect]
     Dosage: 10 MG
     Route: 048
  5. MEMANTINE HCL [Suspect]
     Dosage: 15 MG
     Route: 048
     Dates: end: 20110721

REACTIONS (1)
  - CARDIO-RESPIRATORY ARREST [None]
